FAERS Safety Report 5846690-8 (Version None)
Quarter: 2008Q3

REPORT INFORMATION
  Report Type: 
  Country: None (occurrence: None)
  Receive Date: 20080815
  Receipt Date: 20080805
  Transmission Date: 20090109
  Serious: Yes (Hospitalization)
  Sender: FDA-Public Use
  Company Number: GB-ABBOTT-08P-167-0468941-00

PATIENT
  Sex: Female
  Weight: 90 kg

DRUGS (8)
  1. HUMIRA [Suspect]
     Indication: PSORIASIS
     Route: 058
     Dates: start: 20080530
  2. DAIVOBET (BLINDED) [Suspect]
     Indication: PSORIASIS
     Route: 061
     Dates: start: 20080530
  3. LORATADINE [Concomitant]
     Indication: SEASONAL ALLERGY
     Dates: start: 20080606
  4. CROTAMITON [Concomitant]
     Indication: PRURITUS
     Dates: start: 20080707
  5. BALNEUM PLUS [Concomitant]
     Indication: RASH
     Dates: start: 20080710
  6. CHLORPHENIRAMINE MALEATE [Concomitant]
     Indication: RASH
     Dates: start: 20080711
  7. EUGYNON [Concomitant]
     Indication: CONTRACEPTION
     Dates: start: 20000101
  8. SERETIDE [Concomitant]
     Indication: ASTHMA
     Route: 055
     Dates: start: 19950101

REACTIONS (3)
  - JOINT SWELLING [None]
  - OEDEMA PERIPHERAL [None]
  - PAIN IN EXTREMITY [None]
